FAERS Safety Report 10948330 (Version 1)
Quarter: 2015Q1

REPORT INFORMATION
  Report Type: Spontaneous
  Country: US (occurrence: None)
  Receive Date: 20150323
  Receipt Date: 20150323
  Transmission Date: 20150721
  Serious: Yes (Hospitalization, Disabling)
  Sender: FDA-Public Use
  Company Number: None

PATIENT
  Age: 56 Year
  Sex: Female
  Weight: 75 kg

DRUGS (1)
  1. IPILIMUMAB [Suspect]
     Active Substance: IPILIMUMAB
     Indication: METASTATIC MALIGNANT MELANOMA
     Dosage: EVERY 3 WEEKS
     Route: 042
     Dates: start: 20141218, end: 20150129

REACTIONS (5)
  - Pseudomembranous colitis [None]
  - Respiratory failure [None]
  - Large intestine perforation [None]
  - Bladder discomfort [None]
  - Constipation [None]

NARRATIVE: CASE EVENT DATE: 20150219
